FAERS Safety Report 11742849 (Version 3)
Quarter: 2015Q4

REPORT INFORMATION
  Report Type: Spontaneous
  Country: FR (occurrence: FR)
  Receive Date: 20151116
  Receipt Date: 20151120
  Transmission Date: 20160304
  Serious: Yes (Hospitalization)
  Sender: FDA-Public Use
  Company Number: FR-SA-2015SA177623

PATIENT
  Age: 65 Year
  Sex: Male

DRUGS (18)
  1. CAMPTO [Suspect]
     Active Substance: IRINOTECAN
     Route: 042
     Dates: start: 20150730
  2. ISOPTINE [Concomitant]
     Active Substance: VERAPAMIL HYDROCHLORIDE
     Route: 048
     Dates: end: 20150929
  3. ZOPHREN [Concomitant]
     Active Substance: ONDANSETRON
     Route: 042
     Dates: start: 20150813
  4. ATROPINE. [Concomitant]
     Active Substance: ATROPINE
     Dates: start: 20150730
  5. ELOXATIN [Suspect]
     Active Substance: OXALIPLATIN
     Route: 042
     Dates: start: 20150730
  6. CAMPTO [Suspect]
     Active Substance: IRINOTECAN
     Route: 042
     Dates: start: 20150813
  7. 5-FU [Suspect]
     Active Substance: FLUOROURACIL
     Route: 042
     Dates: start: 20150813
  8. SELOKEN [Concomitant]
     Active Substance: METOPROLOL
     Route: 048
  9. ATROPINE. [Concomitant]
     Active Substance: ATROPINE
     Route: 042
     Dates: start: 20150813
  10. ELOXATIN [Suspect]
     Active Substance: OXALIPLATIN
     Route: 042
     Dates: start: 20150813
  11. 5-FU [Suspect]
     Active Substance: FLUOROURACIL
     Route: 042
     Dates: start: 20150730
  12. SOLU-MEDROL [Concomitant]
     Active Substance: METHYLPREDNISOLONE SODIUM SUCCINATE
     Route: 042
     Dates: start: 20150813
  13. SOLU-MEDROL [Concomitant]
     Active Substance: METHYLPREDNISOLONE SODIUM SUCCINATE
     Dates: start: 20150730
  14. INEXIUM [Concomitant]
     Active Substance: ESOMEPRAZOLE
     Route: 048
  15. ZOPHREN [Concomitant]
     Active Substance: ONDANSETRON
     Dates: start: 20150730
  16. CALCIUM LEVOFOLINATE [Concomitant]
     Active Substance: LEVOLEUCOVORIN CALCIUM
     Route: 042
     Dates: start: 20150813
  17. ATORVASTATIN [Concomitant]
     Active Substance: ATORVASTATIN
  18. KARDEGIC [Concomitant]
     Active Substance: ASPIRIN LYSINE
     Dosage: STRENGTH: 75 MG
     Route: 048

REACTIONS (1)
  - Arteriospasm coronary [Recovered/Resolved]

NARRATIVE: CASE EVENT DATE: 20150815
